FAERS Safety Report 8265728-4 (Version None)
Quarter: 2012Q2

REPORT INFORMATION
  Report Type: 
  Country: None (occurrence: None)
  Receive Date: 20120406
  Receipt Date: 20120404
  Transmission Date: 20120825
  Serious: No
  Sender: FDA-Public Use
  Company Number: US-PFIZER INC-2012056792

PATIENT
  Sex: Female
  Weight: 61.678 kg

DRUGS (1)
  1. LIPITOR [Suspect]
     Indication: BLOOD CHOLESTEROL INCREASED
     Dosage: 10 MG, DAILY
     Route: 048
     Dates: end: 20110101

REACTIONS (4)
  - ARTHRITIS [None]
  - MYALGIA [None]
  - MUSCLE SPASMS [None]
  - MUSCLE TIGHTNESS [None]
